FAERS Safety Report 5955583-7 (Version None)
Quarter: 2008Q4

REPORT INFORMATION
  Report Type: 
  Country: None (occurrence: None)
  Receive Date: 20081117
  Receipt Date: 20081112
  Transmission Date: 20090506
  Serious: Yes (Hospitalization)
  Sender: FDA-Public Use
  Company Number: IT-JNJFOC-20081102841

PATIENT
  Sex: Male

DRUGS (10)
  1. RISPERDAL [Suspect]
     Indication: SENILE PSYCHOSIS
     Route: 048
  2. VERAPAMIL [Concomitant]
     Route: 065
  3. IDROQUARK [Concomitant]
     Route: 065
  4. DEDRALEN [Concomitant]
     Route: 065
  5. MADOPAR [Concomitant]
     Indication: DRUG USE FOR UNKNOWN INDICATION
  6. TORVAST [Concomitant]
     Route: 065
  7. EPINITRIL [Concomitant]
     Route: 065
  8. HALOPERIDOL [Concomitant]
     Route: 048
  9. TICLOPIDINE HCL [Concomitant]
     Route: 065
  10. MELATONINE [Concomitant]
     Route: 048

REACTIONS (2)
  - DYSPHAGIA [None]
  - HEMIPARESIS [None]
